FAERS Safety Report 13176681 (Version 3)
Quarter: 2017Q1

REPORT INFORMATION
  Report Type: Spontaneous
  Country: GB (occurrence: GB)
  Receive Date: 20170201
  Receipt Date: 20170224
  Transmission Date: 20170428
  Serious: Yes (Hospitalization)
  Sender: FDA-Public Use
  Company Number: GB-009507513-1702GBR000277

PATIENT
  Age: 71 Year
  Sex: Female

DRUGS (6)
  1. DARATUMUMAB [Suspect]
     Active Substance: DARATUMUMAB
     Indication: PLASMA CELL MYELOMA
     Dosage: 16 MG, 1 IN 1 WEEK
     Route: 041
     Dates: start: 20161123, end: 20161221
  2. FUROSEMIDE. [Concomitant]
     Active Substance: FUROSEMIDE
     Indication: OEDEMA PERIPHERAL
     Dosage: 20 MILLIGRAM (20 MG, 1 IN 1 HR)
     Route: 048
     Dates: start: 20161214
  3. REVLIMID [Suspect]
     Active Substance: LENALIDOMIDE
     Indication: PLASMA CELL MYELOMA
     Dosage: 25 MILLIGRAM (25 MG 21 IN 28 D)
     Route: 048
     Dates: start: 20161123, end: 20161229
  4. DEXAMETHASONE. [Suspect]
     Active Substance: DEXAMETHASONE
     Indication: PLASMA CELL MYELOMA
     Dosage: 30 MG, 1 IN 1 WEEK
     Route: 041
     Dates: start: 20161123, end: 20161229
  5. DEXAMETHASONE. [Suspect]
     Active Substance: DEXAMETHASONE
     Dosage: DOSE REDUCED (UNKNOWN, 1 IN 1 WEEK)
     Route: 041
     Dates: start: 20161214
  6. REVLIMID [Suspect]
     Active Substance: LENALIDOMIDE
     Dosage: 15MG (15MG 21 IN 28 D)
     Route: 048
     Dates: start: 20170106

REACTIONS (1)
  - Fatigue [Recovered/Resolved]

NARRATIVE: CASE EVENT DATE: 20161229
